FAERS Safety Report 23377019 (Version 1)
Quarter: 2024Q1

REPORT INFORMATION
  Report Type: Spontaneous
  Country: CA (occurrence: CA)
  Receive Date: 20240108
  Receipt Date: 20240108
  Transmission Date: 20240410
  Serious: Yes (Other)
  Sender: FDA-Public Use
  Company Number: CA-TEVA-VS-3139278

PATIENT
  Age: 42 Year

DRUGS (5)
  1. BETAMETHASONE [Suspect]
     Active Substance: BETAMETHASONE\BETAMETHASONE DIPROPIONATE
     Indication: Pityriasis rubra pilaris
     Route: 061
     Dates: start: 2022
  2. PREDNISONE [Suspect]
     Active Substance: PREDNISONE
     Indication: Pityriasis rubra pilaris
     Dosage: FOR 5?DAYS PLUS TAPERING ; SECOND COURSE
     Route: 048
     Dates: start: 2022
  3. PREDNISONE [Suspect]
     Active Substance: PREDNISONE
     Indication: Pityriasis rubra pilaris
     Dosage: FOR 5?DAYS PLUS TAPERING; FIRST COURSE
     Route: 048
     Dates: start: 2022, end: 2022
  4. CYCLOSPORINE [Suspect]
     Active Substance: CYCLOSPORINE
     Indication: Pityriasis rubra pilaris
     Route: 065
     Dates: start: 2022, end: 2022
  5. CYCLOSPORINE [Suspect]
     Active Substance: CYCLOSPORINE
     Indication: Pityriasis rubra pilaris
     Route: 065
     Dates: start: 2022, end: 2022

REACTIONS (3)
  - Dermatitis exfoliative generalised [Recovering/Resolving]
  - Therapeutic product ineffective [Unknown]
  - Pityriasis rubra pilaris [Recovering/Resolving]

NARRATIVE: CASE EVENT DATE: 20220101
